FAERS Safety Report 18869639 (Version 1)
Quarter: 2021Q1

REPORT INFORMATION
  Report Type: Spontaneous
  Country: US (occurrence: US)
  Receive Date: 20210209
  Receipt Date: 20210209
  Transmission Date: 20210420
  Serious: No
  Sender: FDA-Public Use
  Company Number: US-GILEAD-2021-0515174

PATIENT
  Age: 42 Year
  Sex: Male

DRUGS (10)
  1. SOFOSBUVIR;VELPATASVIR [Suspect]
     Active Substance: SOFOSBUVIR\VELPATASVIR
     Indication: CHRONIC HEPATITIS C
     Dosage: 1 DOSAGE FORM, QD
     Route: 048
     Dates: start: 20210108
  2. TRADJENTA [Concomitant]
     Active Substance: LINAGLIPTIN
  3. REVATIO [Concomitant]
     Active Substance: SILDENAFIL CITRATE
  4. FARXIGA [Concomitant]
     Active Substance: DAPAGLIFLOZIN PROPANEDIOL
  5. NORVASC [Concomitant]
     Active Substance: AMLODIPINE BESYLATE
  6. TENEX [Concomitant]
     Active Substance: GUANFACINE HYDROCHLORIDE
  7. GLUCOPHAGE [Concomitant]
     Active Substance: METFORMIN HYDROCHLORIDE
  8. TENORMIN [Concomitant]
     Active Substance: ATENOLOL
  9. FOLBEE [Concomitant]
     Active Substance: CYANOCOBALAMIN\FOLIC ACID\PYRIDOXINE HYDROCHLORIDE
  10. CRESTOR [Concomitant]
     Active Substance: ROSUVASTATIN CALCIUM

REACTIONS (1)
  - Headache [Unknown]
